FAERS Safety Report 22730238 (Version 2)
Quarter: 2023Q4

REPORT INFORMATION
  Report Type: Spontaneous
  Country: US (occurrence: US)
  Receive Date: 20230720
  Receipt Date: 20231207
  Transmission Date: 20240110
  Serious: No
  Sender: FDA-Public Use
  Company Number: US-BRISTOL-MYERS SQUIBB COMPANY-2023-102399

PATIENT
  Age: 41 Year
  Sex: Female

DRUGS (3)
  1. SPRYCEL [Suspect]
     Active Substance: DASATINIB
     Indication: Chronic myeloid leukaemia
     Dosage: FREQUENCY : 30Q/30D
     Route: 048
  2. SPRYCEL [Suspect]
     Active Substance: DASATINIB
     Dates: start: 20230612
  3. SPRYCEL [Suspect]
     Active Substance: DASATINIB
     Dates: start: 20230707

REACTIONS (1)
  - Anaemia [Recovered/Resolved]

NARRATIVE: CASE EVENT DATE: 20230401
